FAERS Safety Report 7730097-2 (Version None)
Quarter: 2011Q3

REPORT INFORMATION
  Report Type: 
  Country: None (occurrence: None)
  Receive Date: 20110906
  Receipt Date: 20110830
  Transmission Date: 20111222
  Serious: Yes (Hospitalization)
  Sender: FDA-Public Use
  Company Number: NL-ROCHE-797612

PATIENT
  Sex: Male

DRUGS (6)
  1. PACLITAXEL [Suspect]
     Indication: NON-SMALL CELL LUNG CANCER
     Route: 042
     Dates: start: 20110301
  2. CARBOPLATIN [Suspect]
     Indication: NON-SMALL CELL LUNG CANCER
     Route: 042
     Dates: start: 20110301
  3. CARBOPLATIN [Suspect]
     Dosage: LAST DOSE PRIOR TO SAE: 02 MAY 2011
     Route: 042
  4. BEVACIZUMAB [Suspect]
     Dosage: LAST DOSE PRIOR TO SAE:27 JULY 2011
     Route: 042
  5. PACLITAXEL [Suspect]
     Dosage: LAST DOSE PRIOR TO SAE: 02 MAY 2011
     Route: 042
  6. BEVACIZUMAB [Suspect]
     Indication: NON-SMALL CELL LUNG CANCER
     Route: 042
     Dates: start: 20110301

REACTIONS (1)
  - METASTASES TO MENINGES [None]
